FAERS Safety Report 20527730 (Version 1)
Quarter: 2022Q1

REPORT INFORMATION
  Report Type: Spontaneous
  Country: GB (occurrence: GB)
  Receive Date: 20220228
  Receipt Date: 20220228
  Transmission Date: 20220423
  Serious: Yes (Other)
  Sender: FDA-Public Use
  Company Number: GB-MHRA-MED-202202231421069360-5DRMK

PATIENT
  Age: 31 Year
  Sex: Female

DRUGS (2)
  1. PROHANCE [Suspect]
     Active Substance: GADOTERIDOL
     Indication: Magnetic resonance imaging
     Dosage: 12 ML, SINGLE; 2ML/S
     Dates: start: 20210722, end: 20210722
  2. BUTYLSCOPOLAMINE BROMIDE [Suspect]
     Active Substance: BUTYLSCOPOLAMINE BROMIDE
     Indication: Magnetic resonance imaging
     Dosage: 20 MG (1 ML)
     Dates: start: 20210722, end: 20210722

REACTIONS (3)
  - Foreign body in throat [Recovered/Resolved]
  - Dry mouth [Recovered/Resolved]
  - Illness [Recovered/Resolved]

NARRATIVE: CASE EVENT DATE: 20210722
